FAERS Safety Report 6838420-8 (Version None)
Quarter: 2010Q3

REPORT INFORMATION
  Report Type: 
  Country: None (occurrence: None)
  Receive Date: 20100713
  Receipt Date: 20070613
  Transmission Date: 20110219
  Serious: No
  Sender: FDA-Public Use
  Company Number: US-PFIZER INC-2007048121

PATIENT
  Sex: Male
  Weight: 156 kg

DRUGS (9)
  1. CHANTIX [Suspect]
     Indication: SMOKING CESSATION THERAPY
     Dates: start: 20070610
  2. ORAP [Concomitant]
     Indication: TOURETTE'S DISORDER
  3. PROZAC [Concomitant]
  4. LIPITOR [Concomitant]
  5. XANAX [Concomitant]
  6. ATENOLOL [Concomitant]
  7. GEMFIBROZIL [Concomitant]
  8. ACETYLSALICYLIC ACID [Concomitant]
  9. OMEPRAZOLE [Concomitant]

REACTIONS (5)
  - ABNORMAL DREAMS [None]
  - ENURESIS [None]
  - PALPITATIONS [None]
  - PRURITUS [None]
  - RASH [None]
